FAERS Safety Report 7546191-5 (Version None)
Quarter: 2011Q2

REPORT INFORMATION
  Report Type: 
  Country: None (occurrence: None)
  Receive Date: 20110614
  Receipt Date: 20040112
  Transmission Date: 20111010
  Serious: Yes (Hospitalization)
  Sender: FDA-Public Use
  Company Number: PHFR2004GB00572

PATIENT
  Sex: Male

DRUGS (2)
  1. CLOZAPINE [Suspect]
     Indication: SCHIZOPHRENIA
     Dosage: 300 MG/DAY
     Route: 048
     Dates: start: 20000201
  2. CLOZAPINE [Suspect]
     Dosage: 200 MG/DAY

REACTIONS (3)
  - DEHYDRATION [None]
  - ABDOMINAL DISTENSION [None]
  - BLOOD CREATININE INCREASED [None]
